FAERS Safety Report 10576933 (Version 4)
Quarter: 2019Q3

REPORT INFORMATION
  Report Type: Report from Study
  Country: BR (occurrence: BR)
  Receive Date: 20141111
  Receipt Date: 20190703
  Transmission Date: 20191004
  Serious: Yes (Hospitalization, Other)
  Sender: FDA-Public Use
  Company Number: PHHY2014BR145614

PATIENT
  Sex: Female
  Weight: 75 kg

DRUGS (14)
  1. MIFLONIDE [Suspect]
     Active Substance: BUDESONIDE
     Dosage: UNK
     Route: 055
     Dates: start: 20160321
  2. CALCITRANS [Concomitant]
     Active Substance: CALCIUM GLUCONATE
     Indication: PRODUCT USED FOR UNKNOWN INDICATION
     Dosage: UNK UNK, QD
     Route: 065
  3. ONBREZ [Suspect]
     Active Substance: INDACATEROL
     Indication: DYSPNOEA
     Dosage: QD, IN THE MORNING
     Route: 055
  4. OXIMAX [Concomitant]
     Active Substance: MOMETASONE FUROATE
     Indication: PRODUCT USED FOR UNKNOWN INDICATION
     Dosage: 400 MG, QD, IN THE MORNING
     Route: 065
  5. DIOVAN HCT [Suspect]
     Active Substance: HYDROCHLOROTHIAZIDE\VALSARTAN
     Dosage: 1 DF (160/12.5 MG), QD (IN THE MORNING)
     Route: 048
  6. DIOVAN [Suspect]
     Active Substance: VALSARTAN
     Indication: HYPERTENSION
     Dosage: 1 DF, QHS
     Route: 048
  7. ATENSINA [Suspect]
     Active Substance: CLONIDINE
     Dosage: 1 DF, QHS (IF BP MORE ABNORMAL)
     Route: 065
  8. RIVOTRIL [Concomitant]
     Active Substance: CLONAZEPAM
     Indication: SLEEP DISORDER
     Dosage: 0.5 MG, UNK
     Route: 065
  9. RELVAR [Concomitant]
     Active Substance: FLUTICASONE FUROATE\VILANTEROL TRIFENATATE
     Indication: PRODUCT USED FOR UNKNOWN INDICATION
     Route: 065
  10. SIMBRINZA [Suspect]
     Active Substance: BRIMONIDINE TARTRATE\BRINZOLAMIDE
     Indication: GLAUCOMA
     Dosage: UNK
     Route: 065
  11. DIOVAN HCT [Suspect]
     Active Substance: HYDROCHLOROTHIAZIDE\VALSARTAN
     Indication: HYPERTENSION
     Dosage: 1 DF (80/12.5 MG), QD (IN THE MORNING)
     Route: 048
  12. SPIRIVA [Concomitant]
     Active Substance: TIOTROPIUM BROMIDE MONOHYDRATE
     Indication: PRODUCT USED FOR UNKNOWN INDICATION
     Dosage: 2 INTAKES IN THE MORNING, BUT WHEN IT IS NOT NECESSARY, SHE ONLY CARRIES OUT 1 INTAKE
     Route: 065
  13. MIFLONIDE [Suspect]
     Active Substance: BUDESONIDE
     Indication: DYSPNOEA
     Dosage: UNK UNK, QD, IN THE MORNING
     Route: 055
  14. ATENSINA [Suspect]
     Active Substance: CLONIDINE
     Indication: HYPERTENSION
     Dosage: 0.5 DF, QHS (IF BP RANGING BETWEEN 15 AND 16)
     Route: 065

REACTIONS (10)
  - Nervousness [Unknown]
  - Dizziness [Unknown]
  - Erythema [Recovering/Resolving]
  - Agitation [Unknown]
  - Femur fracture [Unknown]
  - Cataract [Unknown]
  - Product use in unapproved indication [Unknown]
  - Glaucoma [Unknown]
  - Blood pressure fluctuation [Recovering/Resolving]
  - Emotional distress [Unknown]

NARRATIVE: CASE EVENT DATE: 2018
